FAERS Safety Report 9654995 (Version 1)
Quarter: 2013Q4

REPORT INFORMATION
  Report Type: Spontaneous
  Country: US (occurrence: US)
  Receive Date: 20131029
  Receipt Date: 20131029
  Transmission Date: 20140711
  Serious: No
  Sender: FDA-Public Use
  Company Number: US-PURDUE-USA-2012-0092416

PATIENT
  Age: 37 Year
  Sex: Male
  Weight: 90.7 kg

DRUGS (1)
  1. OXYCONTIN (NDA 22-272) [Suspect]
     Indication: BACK PAIN
     Dosage: 20 MG, TID
     Route: 048
     Dates: start: 20120824

REACTIONS (12)
  - Drug withdrawal syndrome [Not Recovered/Not Resolved]
  - Medication residue present [Unknown]
  - Influenza like illness [Not Recovered/Not Resolved]
  - Pain [Unknown]
  - Lacrimation increased [Unknown]
  - Asthenia [Unknown]
  - Decreased appetite [Unknown]
  - Insomnia [Unknown]
  - Mental impairment [Not Recovered/Not Resolved]
  - Diarrhoea [Unknown]
  - Drug effect decreased [Unknown]
  - Drug ineffective [Unknown]
